FAERS Safety Report 4863697-8 (Version None)
Quarter: 2005Q4

REPORT INFORMATION
  Report Type: 
  Country: None (occurrence: None)
  Receive Date: 20051222
  Receipt Date: 20050628
  Transmission Date: 20060501
  Serious: No
  Sender: FDA-Public Use
  Company Number: US-GLAXOSMITHKLINE-A0564481A

PATIENT
  Age: 57 Year
  Sex: Female

DRUGS (5)
  1. FLONASE [Suspect]
     Route: 045
  2. ADVAIR DISKUS 250/50 [Concomitant]
  3. ALBUTEROL [Concomitant]
  4. ZOMIG [Concomitant]
  5. PREVACID [Concomitant]

REACTIONS (1)
  - NASAL ULCER [None]
